FAERS Safety Report 10220472 (Version 1)
Quarter: 2014Q2

REPORT INFORMATION
  Report Type: Spontaneous
  Country: FR (occurrence: FR)
  Receive Date: 20140606
  Receipt Date: 20140606
  Transmission Date: 20141212
  Serious: Yes (Other)
  Sender: FDA-Public Use
  Company Number: FR-ROCHE-1414191

PATIENT
  Age: 73 Year
  Sex: Male

DRUGS (7)
  1. ZELBORAF [Suspect]
     Indication: MALIGNANT MELANOMA
     Route: 048
     Dates: start: 20140331
  2. ZELBORAF [Suspect]
     Dosage: ZELBORAF HALF-DOSE WAS REINTRODUCED
     Route: 048
  3. ZELBORAF [Suspect]
     Dosage: ZELBORAF DOSE WAS FURTHER INCREASED TO 75%
     Route: 065
  4. CORTANCYL [Concomitant]
     Route: 065
  5. PRIMPERAN [Concomitant]
  6. EUPANTOL [Concomitant]
  7. KEPPRA [Concomitant]

REACTIONS (1)
  - Renal failure acute [Recovering/Resolving]
